FAERS Safety Report 13657210 (Version 3)
Quarter: 2017Q3

REPORT INFORMATION
  Report Type: Spontaneous
  Country: AU (occurrence: AU)
  Receive Date: 20170615
  Receipt Date: 20170811
  Transmission Date: 20171127
  Serious: Yes (Other)
  Sender: FDA-Public Use
  Company Number: AU-ENDO PHARMACEUTICALS INC-2017-003393

PATIENT
  Age: 67 Year
  Sex: Male

DRUGS (4)
  1. PRIMOTESTON DEPOT                      /00103113/ [Suspect]
     Active Substance: TESTOSTERONE ENANTHATE
     Dosage: 250 MG/ML, AT 2 WEEK INTERVAL
     Route: 065
     Dates: end: 201207
  2. AVEED [Suspect]
     Active Substance: TESTOSTERONE UNDECANOATE
     Indication: PRODUCT USED FOR UNKNOWN INDICATION
     Dosage: UNK/ 6-8 WEEK INTERVALS
     Route: 065
     Dates: start: 2012, end: 20131122
  3. PRIMOTESTON DEPOT                      /00103113/ [Suspect]
     Active Substance: TESTOSTERONE ENANTHATE
     Indication: PRODUCT USED FOR UNKNOWN INDICATION
     Dosage: UNKNOWN, AT 4 WEEK INTERVAL
     Route: 065
     Dates: start: 20030301
  4. TESTIM [Suspect]
     Active Substance: TESTOSTERONE
     Indication: ANDROGEN DEFICIENCY
     Dosage: UNK UNKNOWN, UNKNOWN
     Route: 065
     Dates: start: 2000

REACTIONS (3)
  - Prostatic specific antigen increased [Not Recovered/Not Resolved]
  - Prostate cancer stage IV [Unknown]
  - Blood testosterone increased [Unknown]

NARRATIVE: CASE EVENT DATE: 2012
